FAERS Safety Report 4742409-2 (Version None)
Quarter: 2005Q3

REPORT INFORMATION
  Report Type: 
  Country: None (occurrence: None)
  Receive Date: 20050808
  Receipt Date: 20050726
  Transmission Date: 20060218
  Serious: Yes (Death, Hospitalization)
  Sender: FDA-Public Use
  Company Number: HQWYE576227JUL05

PATIENT
  Sex: Female

DRUGS (3)
  1. PREMPRO [Suspect]
     Dates: end: 20000301
  2. PREMARIN [Suspect]
     Dates: start: 19951201
  3. PROVERA [Suspect]
     Dates: start: 19951201

REACTIONS (4)
  - BREAST CANCER METASTATIC [None]
  - OESTROGEN RECEPTOR ASSAY POSITIVE [None]
  - PROGESTERONE RECEPTOR ASSAY POSITIVE [None]
  - PULMONARY EMBOLISM [None]
